FAERS Safety Report 9984252 (Version 2)
Quarter: 2014Q1

REPORT INFORMATION
  Report Type: Report from Study
  Country: US (occurrence: US)
  Receive Date: 20140307
  Receipt Date: 20140307
  Transmission Date: 20141002
  Serious: Yes (Hospitalization, Other)
  Sender: FDA-Public Use
  Company Number: US-ABBVIE-13P-163-1179518-00

PATIENT
  Age: 50 Year
  Sex: Male
  Weight: 78.09 kg

DRUGS (6)
  1. HUMIRA [Suspect]
     Indication: PSORIASIS
     Route: 058
     Dates: start: 2011, end: 20130423
  2. HUMIRA [Suspect]
  3. MORTIN [Concomitant]
     Indication: PRODUCT USED FOR UNKNOWN INDICATION
     Dosage: PRN
  4. FLEXERIL [Concomitant]
     Indication: MUSCLE SPASMS
     Dosage: PRN
  5. SKELAXIN [Concomitant]
     Indication: MUSCLE SPASMS
     Dosage: PRN
  6. VITAMINS [Concomitant]
     Indication: VITAMIN SUPPLEMENTATION

REACTIONS (5)
  - Road traffic accident [Recovered/Resolved]
  - Femur fracture [Recovered/Resolved]
  - Psoriasis [Not Recovered/Not Resolved]
  - Psoriasis [Unknown]
  - Back injury [Recovering/Resolving]
